FAERS Safety Report 7957806-1 (Version None)
Quarter: 2011Q4

REPORT INFORMATION
  Report Type: 
  Country: None (occurrence: None)
  Receive Date: 20111205
  Receipt Date: 20111128
  Transmission Date: 20120403
  Serious: Yes (Hospitalization, Other)
  Sender: FDA-Public Use
  Company Number: US-ABBOTT-11P-163-0878530-00

PATIENT
  Sex: Female
  Weight: 99.88 kg

DRUGS (10)
  1. NEXIUM [Concomitant]
     Indication: GASTROOESOPHAGEAL REFLUX DISEASE
  2. CYMBALTA [Concomitant]
     Indication: DEPRESSION
  3. ENABLEX [Concomitant]
     Indication: URINARY INCONTINENCE
  4. PRIMIDONE [Concomitant]
     Indication: RESTLESS LEGS SYNDROME
  5. PERCOCET [Concomitant]
     Indication: PAIN
  6. HUMIRA [Suspect]
     Indication: RHEUMATOID ARTHRITIS
     Dates: start: 20080101
  7. PREDNISONE TAB [Concomitant]
     Indication: RHEUMATOID ARTHRITIS
  8. MIRAPEX [Concomitant]
     Indication: RESTLESS LEGS SYNDROME
  9. CALCIUM [Concomitant]
     Indication: BONE DISORDER
  10. HYDROCHLOROTHIAZIDE [Concomitant]
     Indication: HYPERTENSION

REACTIONS (7)
  - FALL [None]
  - CEREBROVASCULAR ACCIDENT [None]
  - NODULE [None]
  - PAIN IN EXTREMITY [None]
  - MUSCULOSKELETAL PAIN [None]
  - MUSCULAR WEAKNESS [None]
  - CENTRAL NERVOUS SYSTEM LESION [None]
